FAERS Safety Report 16286507 (Version 1)
Quarter: 2019Q2

REPORT INFORMATION
  Report Type: Spontaneous
  Country: US (occurrence: US)
  Receive Date: 20190508
  Receipt Date: 20190508
  Transmission Date: 20190711
  Serious: Yes (Other)
  Sender: FDA-Public Use
  Company Number: US-MALLINCKRODT-T201804596

PATIENT
  Sex: Female

DRUGS (2)
  1. NALTREXONE [Suspect]
     Active Substance: NALTREXONE
     Dosage: 25 MG, UNK
     Route: 048
  2. NALTREXONE [Suspect]
     Active Substance: NALTREXONE
     Indication: ALCOHOLISM
     Dosage: 50 MG, UNK
     Route: 048

REACTIONS (1)
  - Abdominal pain [Unknown]
